FAERS Safety Report 24289035 (Version 1)
Quarter: 2024Q3

REPORT INFORMATION
  Report Type: Report from Study
  Country: CA (occurrence: CA)
  Receive Date: 20240906
  Receipt Date: 20240906
  Transmission Date: 20241016
  Serious: Yes (Other)
  Sender: ABBVIE
  Company Number: CA-ABBVIE-5905626

PATIENT
  Sex: Female

DRUGS (1)
  1. SKYRIZI [Suspect]
     Active Substance: RISANKIZUMAB-RZAA
     Indication: Crohn^s disease
     Route: 058
     Dates: start: 20230626

REACTIONS (6)
  - Proctalgia [Unknown]
  - Diarrhoea [Unknown]
  - Defaecation urgency [Unknown]
  - Rectal haemorrhage [Unknown]
  - Gastrointestinal stoma complication [Unknown]
  - Fatigue [Unknown]
